FAERS Safety Report 16198702 (Version 1)
Quarter: 2019Q2

REPORT INFORMATION
  Report Type: Spontaneous
  Country: PL (occurrence: PL)
  Receive Date: 20190415
  Receipt Date: 20190415
  Transmission Date: 20190711
  Serious: Yes (Other)
  Sender: FDA-Public Use
  Company Number: PL-PFIZER INC-2019152452

PATIENT
  Age: 31 Year
  Sex: Male
  Weight: 103 kg

DRUGS (5)
  1. PADOLTEN [Concomitant]
     Indication: ANKYLOSING SPONDYLITIS
     Dosage: DOSE: NOT SPECIFIED
     Route: 048
     Dates: start: 20160512
  2. POLPRAZOL [OMEPRAZOLE] [Concomitant]
     Active Substance: OMEPRAZOLE
     Route: 048
     Dates: start: 20160512
  3. ANAPRAN [NAPROXEN] [Suspect]
     Active Substance: NAPROXEN
     Indication: ANKYLOSING SPONDYLITIS
     Dosage: 1000MG
     Route: 048
     Dates: start: 20160512, end: 20160528
  4. SULFASALAZINE. [Suspect]
     Active Substance: SULFASALAZINE
     Indication: ANKYLOSING SPONDYLITIS
     Dosage: 2000 MG
     Route: 048
     Dates: start: 20160512, end: 20160528
  5. METYPRED [METHYLPREDNISOLONE] [Concomitant]
     Active Substance: METHYLPREDNISOLONE
     Indication: ANKYLOSING SPONDYLITIS
     Route: 048
     Dates: start: 20160512

REACTIONS (3)
  - Erythema [Recovered/Resolved]
  - Dyspnoea [Recovered/Resolved]
  - Rash [Recovered/Resolved]

NARRATIVE: CASE EVENT DATE: 20160528
